FAERS Safety Report 14710892 (Version 1)
Quarter: 2018Q2

REPORT INFORMATION
  Report Type: Spontaneous
  Country: US (occurrence: US)
  Receive Date: 20180403
  Receipt Date: 20180403
  Transmission Date: 20180711
  Serious: No
  Sender: FDA-Public Use
  Company Number: US-BAUSCH-BL-2017-007941

PATIENT
  Sex: Male

DRUGS (2)
  1. RENOVA [Suspect]
     Active Substance: TRETINOIN
     Indication: PSEUDOFOLLICULITIS BARBAE
     Dosage: APPLIED TWICE
     Route: 061
     Dates: start: 20170322, end: 20170323
  2. RENOVA [Suspect]
     Active Substance: TRETINOIN
     Indication: THERAPEUTIC SKIN CARE TOPICAL

REACTIONS (3)
  - Drug ineffective [Unknown]
  - Product quality issue [Unknown]
  - Off label use [Recovered/Resolved]

NARRATIVE: CASE EVENT DATE: 20170322
